FAERS Safety Report 10446603 (Version 3)
Quarter: 2015Q2

REPORT INFORMATION
  Report Type: Spontaneous
  Country: US (occurrence: US)
  Receive Date: 20140911
  Receipt Date: 20150626
  Transmission Date: 20150821
  Serious: Yes (Hospitalization)
  Sender: FDA-Public Use
  Company Number: US-UCBSA-113517

PATIENT
  Age: 58 Year
  Sex: Female
  Weight: 127 kg

DRUGS (5)
  1. KEPPRA XR [Suspect]
     Active Substance: LEVETIRACETAM
     Indication: OFF LABEL USE
  2. VIMPAT [Suspect]
     Active Substance: LACOSAMIDE
     Indication: SEIZURE
     Dosage: 200 MG, 2X/DAY (BID) (200MG IN AM AND 200MG IN PM)
     Route: 048
  3. KEPPRA XR [Suspect]
     Active Substance: LEVETIRACETAM
     Indication: SEIZURE
     Dosage: 1500 MG, 2X/DAY (BID)
     Route: 048
     Dates: start: 2011
  4. CELEXA [Concomitant]
     Active Substance: CITALOPRAM HYDROBROMIDE
     Indication: DEPRESSION
     Dosage: 400 MG, ONCE DAILY (QD)
     Dates: start: 201005
  5. NABUMETONE. [Concomitant]
     Active Substance: NABUMETONE
     Indication: ARTHRITIS
     Dosage: 750 MG, 2X/DAY (BID)

REACTIONS (6)
  - Inappropriate schedule of drug administration [Unknown]
  - Off label use [Unknown]
  - Brain operation [Recovering/Resolving]
  - Post procedural complication [Unknown]
  - Mental disorder [Not Recovered/Not Resolved]
  - Seizure [Not Recovered/Not Resolved]

NARRATIVE: CASE EVENT DATE: 2011
